FAERS Safety Report 9928700 (Version 1)
Quarter: 2014Q1

REPORT INFORMATION
  Report Type: Spontaneous
  Country: US (occurrence: US)
  Receive Date: 20140227
  Receipt Date: 20140227
  Transmission Date: 20141002
  Serious: No
  Sender: FDA-Public Use
  Company Number: US-LUNDBECK-DKLU1097111

PATIENT
  Sex: Female

DRUGS (4)
  1. ONFI [Suspect]
     Indication: CONVULSION
     Route: 048
     Dates: start: 20131218
  2. ONFI [Suspect]
     Indication: EPILEPSY
  3. ONFI [Suspect]
     Indication: EPILEPSY
  4. DEPAKOTE [Concomitant]
     Indication: PRODUCT USED FOR UNKNOWN INDICATION

REACTIONS (1)
  - Pruritus generalised [Unknown]
